FAERS Safety Report 6017656-2 (Version None)
Quarter: 2008Q4

REPORT INFORMATION
  Report Type: 
  Country: None (occurrence: None)
  Receive Date: 20081223
  Receipt Date: 20081216
  Transmission Date: 20090506
  Serious: Yes (Other)
  Sender: FDA-Public Use
  Company Number: US-BAXTER-2008BH014084

PATIENT

DRUGS (2)
  1. BREVIBLOC [Suspect]
     Indication: DRUG USE FOR UNKNOWN INDICATION
     Route: 042
  2. BREVIBLOC [Suspect]
     Indication: OFF LABEL USE
     Route: 042

REACTIONS (2)
  - CONVULSION [None]
  - HYPONATRAEMIA [None]
